FAERS Safety Report 18445444 (Version 1)
Quarter: 2020Q4

REPORT INFORMATION
  Report Type: Spontaneous
  Country: US (occurrence: US)
  Receive Date: 20201030
  Receipt Date: 20201030
  Transmission Date: 20210114
  Serious: Yes (Hospitalization)
  Sender: FDA-Public Use
  Company Number: US-PFIZER INC-2020420070

PATIENT
  Age: 49 Year
  Sex: Female

DRUGS (2)
  1. LETROZOLE. [Concomitant]
     Active Substance: LETROZOLE
     Dosage: UNK , [TAKES LETROZOLE IN THE AM]
  2. IBRANCE [Suspect]
     Active Substance: PALBOCICLIB
     Indication: MALIGNANT NEOPLASM PROGRESSION
     Dosage: 125 MG, CYCLIC , [ONCE D FOR 21 D ON, 7 D OFF /AT BEDTIME]
     Dates: start: 20200911

REACTIONS (4)
  - Diarrhoea [Unknown]
  - Blood electrolytes decreased [Unknown]
  - Vomiting [Unknown]
  - Ovarian disorder [Unknown]
